FAERS Safety Report 5616131-4 (Version None)
Quarter: 2008Q1

REPORT INFORMATION
  Report Type: 
  Country: None (occurrence: None)
  Receive Date: 20080206
  Receipt Date: 20080125
  Transmission Date: 20080703
  Serious: Yes (Other)
  Sender: FDA-Public Use
  Company Number: US-PFIZER INC-2008008079

PATIENT
  Sex: Female
  Weight: 67.272 kg

DRUGS (2)
  1. CHANTIX [Suspect]
     Indication: SMOKING CESSATION THERAPY
  2. AMBIEN [Suspect]

REACTIONS (6)
  - ABNORMAL DREAMS [None]
  - DEPRESSION [None]
  - DRUG ADMINISTRATION ERROR [None]
  - NIGHTMARE [None]
  - POOR QUALITY SLEEP [None]
  - SUICIDAL IDEATION [None]
